FAERS Safety Report 5122640-7 (Version None)
Quarter: 2006Q4

REPORT INFORMATION
  Report Type: 
  Country: None (occurrence: None)
  Receive Date: 20061005
  Receipt Date: 20061005
  Transmission Date: 20070319
  Serious: Yes (Hospitalization)
  Sender: FDA-Public Use
  Company Number: None

PATIENT
  Age: 85 Year
  Sex: Male
  Weight: 78 kg

DRUGS (14)
  1. WARFARIN SODIUM [Suspect]
     Indication: ATRIAL FIBRILLATION
     Dosage: 7.5MG + 5 MG W+S/M/T/T/F/S PO
     Route: 048
     Dates: start: 20030523, end: 20060706
  2. WARFARIN SODIUM [Suspect]
     Indication: MITRAL VALVE REPLACEMENT
     Dosage: 7.5MG + 5 MG W+S/M/T/T/F/S PO
     Route: 048
     Dates: start: 20030523, end: 20060706
  3. ASPIRIN [Concomitant]
  4. LEVOTHYROXINE SODIUM [Concomitant]
  5. OMEPRAZOLE [Concomitant]
  6. SIMVASTATIN [Concomitant]
  7. PREDNISONE TAB [Concomitant]
  8. TESTOSTERONE [Concomitant]
  9. CALCIUM/ VIT.D [Concomitant]
  10. BROMOCRIPTINE MESYLATE [Concomitant]
  11. FUROSEMIDE [Concomitant]
  12. LISINOPRIL [Concomitant]
  13. METOPROLOL TARTRATE [Concomitant]
  14. WARFARIN SODIUM [Concomitant]

REACTIONS (3)
  - ARTERIOVENOUS MALFORMATION [None]
  - GASTROINTESTINAL HAEMORRHAGE [None]
  - HYPOTENSION [None]
